FAERS Safety Report 10594905 (Version 3)
Quarter: 2015Q1

REPORT INFORMATION
  Report Type: Spontaneous
  Country: JP (occurrence: JP)
  Receive Date: 20141120
  Receipt Date: 20150324
  Transmission Date: 20150720
  Serious: Yes (Hospitalization)
  Sender: FDA-Public Use
  Company Number: JP-MERCK-1411JPN007767

PATIENT
  Age: 60 Year
  Sex: Male
  Weight: 49 kg

DRUGS (5)
  1. DECADRON (DEXAMETHASONE SODIUM PHOSPHATE) [Suspect]
     Active Substance: DEXAMETHASONE SODIUM PHOSPHATE
     Indication: BRAIN OEDEMA
     Dosage: TOTAL DAILY DOSE: 6.6MG PER DAY
     Route: 042
     Dates: start: 201307
  2. TEMSIROLIMUS [Suspect]
     Active Substance: TEMSIROLIMUS
     Indication: METASTASES TO CENTRAL NERVOUS SYSTEM
     Dosage: FIRST CYCLE: 25 MG DAILY DOSE/BODY
     Route: 041
     Dates: start: 20130912
  3. DECADRON (DEXAMETHASONE SODIUM PHOSPHATE) [Suspect]
     Active Substance: DEXAMETHASONE SODIUM PHOSPHATE
     Dosage: DAILY DOSE UNKNOWN
     Route: 065
  4. TEMSIROLIMUS [Suspect]
     Active Substance: TEMSIROLIMUS
     Dosage: SECOND CYCLE: 20 MG DAILY DOSE/BODY
     Route: 041
     Dates: start: 20130919
  5. DECADRON (DEXAMETHASONE SODIUM PHOSPHATE) [Suspect]
     Active Substance: DEXAMETHASONE SODIUM PHOSPHATE
     Dosage: TOTAL DAILY DOSE: 1 MG PER DAY
     Route: 042

REACTIONS (1)
  - Pneumocystis jirovecii pneumonia [Recovered/Resolved]

NARRATIVE: CASE EVENT DATE: 20130930
